FAERS Safety Report 22324734 (Version 1)
Quarter: 2023Q2

REPORT INFORMATION
  Report Type: Spontaneous
  Country: US (occurrence: None)
  Receive Date: 20230514
  Receipt Date: 20230514
  Transmission Date: 20230721
  Serious: Yes (Hospitalization, Other)
  Sender: FDA-Public Use
  Company Number: None

PATIENT
  Age: 82 Year
  Sex: Female
  Weight: 93 kg

DRUGS (7)
  1. FLUORESCEIN [Suspect]
     Active Substance: FLUORESCEIN
     Indication: Imaging procedure
     Dosage: 200 MG  ONCE INTRAVENOUS BOLUS ?
     Route: 040
     Dates: start: 20230509, end: 20230509
  2. APIXABAN [Concomitant]
     Active Substance: APIXABAN
  3. CITALOPRAM [Concomitant]
     Active Substance: CITALOPRAM HYDROBROMIDE
  4. LOSARTAN [Concomitant]
     Active Substance: LOSARTAN
  5. HYDROCHLOROTHIAZIDE [Concomitant]
     Active Substance: HYDROCHLOROTHIAZIDE
  6. PREGABALIN [Concomitant]
     Active Substance: PREGABALIN
  7. VERAPAMIL [Concomitant]
     Active Substance: VERAPAMIL HYDROCHLORIDE

REACTIONS (2)
  - Anaphylactic reaction [None]
  - Burning sensation [None]

NARRATIVE: CASE EVENT DATE: 20230509
